FAERS Safety Report 16542828 (Version 3)
Quarter: 2020Q1

REPORT INFORMATION
  Report Type: Spontaneous
  Country: JP (occurrence: JP)
  Receive Date: 20190709
  Receipt Date: 20200225
  Transmission Date: 20200409
  Serious: Yes (Other)
  Sender: FDA-Public Use
  Company Number: JP-SAKK-2019SA182165AA

PATIENT
  Sex: Male

DRUGS (6)
  1. MUCODYNE [Concomitant]
     Active Substance: CARBOCYSTEINE
     Indication: ASTHMA
     Dosage: 500 MG, TID
     Route: 065
     Dates: start: 20181204
  2. DUPIXENT [Suspect]
     Active Substance: DUPILUMAB
     Indication: ASTHMA
     Dosage: 300 MG, QOW
     Route: 058
     Dates: start: 20190611
  3. RELVAR [Concomitant]
     Active Substance: FLUTICASONE FUROATE\VILANTEROL TRIFENATATE
     Indication: ASTHMA
     Dosage: UNK, QD
     Route: 065
     Dates: start: 20180605
  4. OZAGREL [OZAGREL HYDROCHLORIDE] [Concomitant]
     Indication: ASTHMA
     Dosage: 200 MG, BID
     Route: 065
     Dates: start: 20181211
  5. THEOLONG [Concomitant]
     Active Substance: THEOPHYLLINE ANHYDROUS
     Indication: ASTHMA
     Dosage: 100 MG, BID
     Route: 065
     Dates: start: 20180605
  6. RUPAFIN [Concomitant]
     Active Substance: RUPATADINE FUMARATE
     Indication: CHRONIC EOSINOPHILIC RHINOSINUSITIS
     Dosage: 10 MG, QD
     Route: 065
     Dates: start: 20181211

REACTIONS (2)
  - Pneumonia bacterial [Recovered/Resolved]
  - Pyrexia [Recovered/Resolved]

NARRATIVE: CASE EVENT DATE: 20190613
